FAERS Safety Report 4938273-9 (Version None)
Quarter: 2006Q1

REPORT INFORMATION
  Report Type: 
  Country: None (occurrence: None)
  Receive Date: 20060308
  Receipt Date: 20060308
  Transmission Date: 20060701
  Serious: No
  Sender: FDA-Public Use
  Company Number: None

PATIENT
  Age: 25 Year
  Sex: Female
  Weight: 72.5755 kg

DRUGS (1)
  1. LAMOTRIGINE [Suspect]
     Dosage: 50 MG BEDTIME PO
     Route: 048

REACTIONS (1)
  - RASH [None]
